FAERS Safety Report 9321476 (Version 1)
Quarter: 2013Q2

REPORT INFORMATION
  Report Type: Spontaneous
  Country: NL (occurrence: NL)
  Receive Date: 20130531
  Receipt Date: 20130531
  Transmission Date: 20140414
  Serious: Yes (Other)
  Sender: FDA-Public Use
  Company Number: PHHY2013NL052910

PATIENT
  Sex: Female

DRUGS (5)
  1. CLARITHROMYCIN [Suspect]
     Dosage: 500 MG, BID
  2. PANTOPRAZOLE [Suspect]
     Dosage: 40 MG, BID
  3. AMOXICILLIN [Suspect]
     Dosage: 1000 MG, BID
  4. ENALAPRIL+HCTZ [Concomitant]
  5. VERAPAMIL [Concomitant]

REACTIONS (2)
  - Bronchospasm [Recovered/Resolved]
  - Angioedema [Recovered/Resolved]
